FAERS Safety Report 7902007-6 (Version None)
Quarter: 2011Q4

REPORT INFORMATION
  Report Type: 
  Country: None (occurrence: None)
  Receive Date: 20111108
  Receipt Date: 20111102
  Transmission Date: 20120403
  Serious: Yes (Hospitalization)
  Sender: FDA-Public Use
  Company Number: US-GLAXOSMITHKLINE-A0945817A

PATIENT
  Age: 77 Year
  Sex: Female

DRUGS (9)
  1. CRESTOR [Concomitant]
  2. FISH OIL [Concomitant]
  3. AMITRIPTYLINE HCL [Concomitant]
  4. LASIX [Concomitant]
  5. VENTOLIN [Suspect]
     Indication: BRONCHOSPASM
     Route: 055
  6. ADVAIR DISKUS 100/50 [Suspect]
     Indication: CHRONIC OBSTRUCTIVE PULMONARY DISEASE
     Dosage: 2PUFF TWICE PER DAY
     Route: 055
     Dates: start: 20100301
  7. KLOR-CON [Concomitant]
  8. LEVOTHYROXINE SODIUM [Concomitant]
  9. SPIRIVA [Suspect]
     Dates: start: 20110909

REACTIONS (7)
  - BRONCHITIS [None]
  - DRUG INEFFECTIVE [None]
  - CHRONIC OBSTRUCTIVE PULMONARY DISEASE [None]
  - PNEUMONIA [None]
  - FEELING COLD [None]
  - DEHYDRATION [None]
  - DYSPNOEA [None]
